FAERS Safety Report 4775740-5 (Version None)
Quarter: 2005Q3

REPORT INFORMATION
  Report Type: 
  Country: None (occurrence: None)
  Receive Date: 20050922
  Receipt Date: 20050914
  Transmission Date: 20060218
  Serious: Yes (Congenital Anomaly)
  Sender: FDA-Public Use
  Company Number: PHFR2005GB03056

PATIENT
  Sex: Male

DRUGS (4)
  1. AMISULPRIDE [Concomitant]
     Route: 064
  2. VENTOLIN [Concomitant]
     Route: 064
  3. SERETIDE [Concomitant]
     Route: 064
  4. CLOZARIL [Suspect]
     Route: 064

REACTIONS (2)
  - CONGENITAL CYSTIC LUNG [None]
  - DRUG EXPOSURE DURING PREGNANCY [None]
